FAERS Safety Report 11217135 (Version 2)
Quarter: 2015Q3

REPORT INFORMATION
  Report Type: Report from Study
  Country: US (occurrence: US)
  Receive Date: 20150624
  Receipt Date: 20150804
  Transmission Date: 20151125
  Serious: Yes (Hospitalization)
  Sender: FDA-Public Use
  Company Number: US-SA-2015SA090647

PATIENT
  Age: 49 Year
  Sex: Female
  Weight: 84 kg

DRUGS (6)
  1. FENOFIBRATE. [Concomitant]
     Active Substance: FENOFIBRATE
  2. GABAPENTIN. [Concomitant]
     Active Substance: GABAPENTIN
  3. TOPAMAX [Concomitant]
     Active Substance: TOPIRAMATE
  4. AUBAGIO [Suspect]
     Active Substance: TERIFLUNOMIDE
     Indication: RELAPSING-REMITTING MULTIPLE SCLEROSIS
     Route: 048
     Dates: start: 20150320
  5. AUBAGIO [Suspect]
     Active Substance: TERIFLUNOMIDE
     Indication: RELAPSING-REMITTING MULTIPLE SCLEROSIS
     Route: 048
     Dates: start: 201505, end: 20150611
  6. CRESTOR [Concomitant]
     Active Substance: ROSUVASTATIN CALCIUM

REACTIONS (7)
  - Pain in extremity [Recovered/Resolved]
  - Nausea [Recovered/Resolved]
  - Diarrhoea [Recovered/Resolved]
  - Abdominal discomfort [Recovered/Resolved]
  - Pain [Recovering/Resolving]
  - Paranasal sinus discomfort [Recovered/Resolved]
  - Pneumonia [Recovering/Resolving]

NARRATIVE: CASE EVENT DATE: 2015
